FAERS Safety Report 4303525-2 (Version None)
Quarter: 2004Q1

REPORT INFORMATION
  Report Type: 
  Country: None (occurrence: None)
  Receive Date: 20040225
  Receipt Date: 20040219
  Transmission Date: 20041129
  Serious: Yes (Hospitalization)
  Sender: FDA-Public Use
  Company Number: 200411324US

PATIENT
  Sex: Female
  Weight: 68.8 kg

DRUGS (3)
  1. DOCETAXEL [Suspect]
     Indication: NON-SMALL CELL LUNG CANCER
     Route: 042
     Dates: start: 20040205, end: 20040213
  2. CISPLATIN [Suspect]
     Indication: NON-SMALL CELL LUNG CANCER
     Route: 042
     Dates: start: 20040205, end: 20040213
  3. CAPECITABINE [Suspect]
     Indication: NON-SMALL CELL LUNG CANCER
     Dosage: DOSE: 825 MG/M2 PO BID X 14 DAYS
     Route: 048
     Dates: start: 20040201, end: 20040201

REACTIONS (9)
  - BLOOD SODIUM DECREASED [None]
  - DEHYDRATION [None]
  - DIARRHOEA [None]
  - HYPOALBUMINAEMIA [None]
  - HYPOCALCAEMIA [None]
  - LEUKOPENIA [None]
  - NEUTROPENIA [None]
  - STOMATITIS [None]
  - VOMITING [None]
